FAERS Safety Report 7235039-4 (Version None)
Quarter: 2011Q1

REPORT INFORMATION
  Report Type: 
  Country: None (occurrence: None)
  Receive Date: 20110111
  Receipt Date: 20101227
  Transmission Date: 20110831
  Serious: Yes (Death)
  Sender: FDA-Public Use
  Company Number: AUR-APL-2010-03241

PATIENT
  Age: 78 Year
  Sex: Male

DRUGS (8)
  1. BISOPROLOL 5MG [Concomitant]
  2. RISPERDAL [Suspect]
     Dosage: 0.5-2MG - DAILY - ORAL
     Route: 048
     Dates: start: 20100512, end: 20100530
  3. ASS (ACETYLSALICYLIC ACID) 100MG [Concomitant]
  4. INSULIN [Concomitant]
  5. JONOSTERIL [Concomitant]
  6. SERTRALINE HYDROCHLORIDE [Suspect]
     Dosage: 50-100MG - DAILY - ORAL
     Route: 048
     Dates: end: 20100530
  7. SIMVASTATIN [Concomitant]
  8. TOREM (TORASEMIDE) 5MG [Concomitant]

REACTIONS (2)
  - UNRESPONSIVE TO STIMULI [None]
  - ACUTE MYOCARDIAL INFARCTION [None]
